FAERS Safety Report 11118225 (Version 1)
Quarter: 2015Q2

REPORT INFORMATION
  Report Type: Spontaneous
  Country: FR (occurrence: None)
  Receive Date: 20150514
  Receipt Date: 20150514
  Transmission Date: 20150821
  Serious: Yes (Hospitalization)
  Sender: FDA-Public Use
  Company Number: POI0581201500008

PATIENT
  Age: 49 Year
  Sex: Male

DRUGS (5)
  1. CORTICOSTEROIDS [Concomitant]
     Active Substance: CORTICOSTEROID NOS
  2. METFORMIN [Concomitant]
     Active Substance: METFORMIN HYDROCHLORIDE
  3. AZATHIOPRINE. [Suspect]
     Active Substance: AZATHIOPRINE
     Indication: COLITIS ULCERATIVE
  4. INSULIN [Concomitant]
     Active Substance: INSULIN NOS
  5. VALPROIC ACID. [Concomitant]
     Active Substance: VALPROIC ACID

REACTIONS (7)
  - Purpura [None]
  - Drug hypersensitivity [None]
  - Erythema nodosum [None]
  - Thrombocytopenia [None]
  - C-reactive protein increased [None]
  - Pyrexia [None]
  - Chills [None]

NARRATIVE: CASE EVENT DATE: 201504
